FAERS Safety Report 7561932-9 (Version None)
Quarter: 2011Q2

REPORT INFORMATION
  Report Type: 
  Country: None (occurrence: None)
  Receive Date: 20110621
  Receipt Date: 20110610
  Transmission Date: 20111010
  Serious: Yes (Hospitalization)
  Sender: FDA-Public Use
  Company Number: US-BAXTER-2011BH019211

PATIENT
  Age: 4 Month
  Sex: Male

DRUGS (7)
  1. PREVNAR [Concomitant]
     Indication: IMMUNISATION
     Route: 065
     Dates: start: 20110605, end: 20110605
  2. DIANEAL [Suspect]
     Route: 033
     Dates: start: 20110409, end: 20110101
  3. DIANEAL PD-2 W/ DEXTROSE 1.5% [Suspect]
     Indication: RENAL FAILURE ACUTE
     Route: 033
     Dates: start: 20110202
  4. PEDIARIX [Concomitant]
     Indication: IMMUNISATION
     Route: 065
     Dates: start: 20110605, end: 20110605
  5. DIANEAL PD-2 W/ DEXTROSE 1.5% [Suspect]
     Indication: URETHRAL DISORDER
     Route: 033
     Dates: start: 20110202
  6. HIB-IMUNE [Concomitant]
     Indication: IMMUNISATION
     Route: 065
     Dates: start: 20110605, end: 20110605
  7. DIANEAL [Suspect]
     Indication: PERITONEAL DIALYSIS
     Route: 033
     Dates: start: 20110606

REACTIONS (1)
  - PYREXIA [None]
